FAERS Safety Report 7118685-8 (Version None)
Quarter: 2010Q4

REPORT INFORMATION
  Report Type: 
  Country: None (occurrence: None)
  Receive Date: 20101123
  Receipt Date: 20101116
  Transmission Date: 20110411
  Serious: No
  Sender: FDA-Public Use
  Company Number: US-PFIZER INC-2010149958

PATIENT
  Sex: Male
  Weight: 78 kg

DRUGS (2)
  1. ANSAID [Suspect]
     Indication: PAIN
     Dosage: 100 MG, 3X/DAY
     Route: 048
     Dates: start: 20100901, end: 20101010
  2. ANSAID [Suspect]
     Indication: SWELLING

REACTIONS (1)
  - SEXUAL DYSFUNCTION [None]
